FAERS Safety Report 6695362-9 (Version None)
Quarter: 2010Q2

REPORT INFORMATION
  Report Type: 
  Country: None (occurrence: None)
  Receive Date: 20100423
  Receipt Date: 20100423
  Transmission Date: 20101027
  Serious: Yes (Hospitalization)
  Sender: FDA-Public Use
  Company Number: None

PATIENT
  Age: 40 Year
  Sex: Male
  Weight: 90 kg

DRUGS (17)
  1. XANAX [Suspect]
     Indication: ANXIETY
     Dosage: 1 MG QID PO CHRONIC W/ RECENT INCREASE
     Route: 048
  2. METHADONE HCL [Suspect]
     Indication: PAIN
     Dosage: 10 MG X 2 TID PO CHRONIC
     Route: 048
  3. CYMBALTA [Concomitant]
  4. BUSPIRONE HCL [Concomitant]
  5. SOMA [Concomitant]
  6. GABAPENTIN [Concomitant]
  7. HYDROXYZINE [Concomitant]
  8. LIDOCAINE [Concomitant]
  9. MAXALT [Concomitant]
  10. MOTRIN [Concomitant]
  11. MUCINEX [Concomitant]
  12. PROVENTIL-HFA [Concomitant]
  13. REMERON [Concomitant]
  14. SEROQUEL [Concomitant]
  15. SUBOXONE [Concomitant]
  16. VALTREX [Concomitant]
  17. VOLTAREN [Concomitant]

REACTIONS (9)
  - ANAEMIA [None]
  - DEPRESSED LEVEL OF CONSCIOUSNESS [None]
  - HAEMATOCHEZIA [None]
  - HYPOCALCAEMIA [None]
  - INCORRECT DOSE ADMINISTERED [None]
  - NECK PAIN [None]
  - PAIN IN JAW [None]
  - SOMNOLENCE [None]
  - TOXICOLOGIC TEST ABNORMAL [None]
